FAERS Safety Report 18404711 (Version 2)
Quarter: 2021Q3

REPORT INFORMATION
  Report Type: Spontaneous
  Country: US (occurrence: US)
  Receive Date: 20201020
  Receipt Date: 20210825
  Transmission Date: 20211014
  Serious: No
  Sender: FDA-Public Use
  Company Number: US-TAKEDA-2020TUS043529

PATIENT
  Age: 67 Year
  Sex: Male
  Weight: 82 kg

DRUGS (7)
  1. ALUNBRIG [Suspect]
     Active Substance: BRIGATINIB
     Indication: LUNG CARCINOMA CELL TYPE UNSPECIFIED STAGE IV
     Dosage: 90 MILLIGRAM
     Route: 065
     Dates: start: 20200828
  2. GAS?X [Concomitant]
     Active Substance: DIMETHICONE
     Indication: DISCOMFORT
  3. PREDNISONE. [Concomitant]
     Active Substance: PREDNISONE
     Indication: HYPERSENSITIVITY
     Dosage: UNK
  4. CALCIUM + MAGNESIUM [Concomitant]
     Active Substance: CALCIUM\MAGNESIUM
  5. VITAMIN D3 [Concomitant]
     Active Substance: CHOLECALCIFEROL
     Dosage: 500 MILLIGRAM, QD
  6. VITAMIN C [Concomitant]
     Active Substance: ASCORBIC ACID
  7. ALUNBRIG [Suspect]
     Active Substance: BRIGATINIB
     Dosage: 180 MILLIGRAM, QD
     Route: 065
     Dates: start: 20200828

REACTIONS (8)
  - Swelling face [Not Recovered/Not Resolved]
  - Paraesthesia oral [Not Recovered/Not Resolved]
  - Abdominal distension [Unknown]
  - Erythema [Not Recovered/Not Resolved]
  - Eructation [Unknown]
  - Discomfort [Unknown]
  - Flatulence [Unknown]
  - Ear swelling [Not Recovered/Not Resolved]

NARRATIVE: CASE EVENT DATE: 20201016
